FAERS Safety Report 7110211-2 (Version None)
Quarter: 2010Q4

REPORT INFORMATION
  Report Type: 
  Country: None (occurrence: None)
  Receive Date: 20101112
  Receipt Date: 20101108
  Transmission Date: 20110411
  Serious: Yes (Hospitalization)
  Sender: FDA-Public Use
  Company Number: 1-18178018

PATIENT
  Age: 48 Year
  Sex: Female
  Weight: 78.9259 kg

DRUGS (7)
  1. QUININE SULFATE [Suspect]
     Indication: MUSCLE SPASMS
     Dosage: AS NEEDED, ORAL
     Route: 048
     Dates: start: 20050328
  2. ALPRAZOLAM [Concomitant]
  3. HYDROCODONE [Concomitant]
  4. NABUMETONE [Concomitant]
  5. AVANDIA [Concomitant]
  6. METFORMIN [Concomitant]
  7. COMBIVENT (ALBUTEROL SULFATE AND IPRATROPIUM BROMIDE) [Concomitant]

REACTIONS (9)
  - ADVERSE EVENT [None]
  - ANGINA PECTORIS [None]
  - ARTHRITIS [None]
  - ASTHMA [None]
  - BACTERIAL INFECTION [None]
  - DRUG HYPERSENSITIVITY [None]
  - HYPERTENSION [None]
  - PAIN [None]
  - THROMBOCYTOPENIA [None]
